FAERS Safety Report 8922205 (Version 2)
Quarter: 2012Q4

REPORT INFORMATION
  Report Type: Report from Study
  Country: DE (occurrence: DE)
  Receive Date: 20121123
  Receipt Date: 20121212
  Transmission Date: 20130627
  Serious: Yes (Hospitalization)
  Sender: FDA-Public Use
  Company Number: DE-SANOFI-AVENTIS-2012SA083041

PATIENT
  Age: 61 Year
  Sex: Female
  Weight: 98 kg

DRUGS (22)
  1. DOCETAXEL [Suspect]
     Indication: NON-SMALL CELL LUNG CANCER STAGE IV
     Route: 041
     Dates: start: 20120703, end: 20120703
  2. DOCETAXEL [Suspect]
     Indication: NON-SMALL CELL LUNG CANCER STAGE IV
     Route: 041
     Dates: start: 20121023, end: 20121023
  3. INVESTIGATIONAL DRUG [Suspect]
     Indication: NON-SMALL CELL LUNG CANCER STAGE IV
     Route: 042
     Dates: start: 20121023, end: 20121023
  4. INVESTIGATIONAL DRUG [Suspect]
     Indication: NON-SMALL CELL LUNG CANCER STAGE IV
     Route: 042
     Dates: start: 20120703, end: 20120703
  5. DEXAMETHASONE SODIUM PHOSPHATE [Concomitant]
  6. CLEMASTINE FUMARATE [Concomitant]
     Dates: start: 20121023, end: 20121023
  7. RANITIDINE HYDROCHLORIDE [Concomitant]
     Dates: start: 20121023, end: 20121023
  8. ONDANSETRON [Concomitant]
     Dates: start: 20120705, end: 20121023
  9. CYMBALTA [Concomitant]
     Dates: start: 20120625
  10. SINUPRET [Concomitant]
     Dates: start: 20120625
  11. MONO-EMBOLEX [Concomitant]
     Dates: start: 20120625
  12. DELIX [Concomitant]
     Dates: start: 20120625
  13. ZOLPIDEM [Concomitant]
     Dates: start: 20120625
  14. METAMIZOLE [Concomitant]
     Dates: start: 20120626
  15. IBUPROFEN [Concomitant]
     Dates: start: 20120702
  16. BEROTEC [Concomitant]
     Dates: start: 201203
  17. LOPEDIUM [Concomitant]
     Dates: start: 20120705
  18. OXYGESIC [Concomitant]
     Dates: start: 20120703
  19. LOPERAMIDE HYDROCHLORIDE [Concomitant]
     Dates: start: 20120709
  20. CLEXANE [Concomitant]
     Dates: start: 20120926
  21. TAVOR [Concomitant]
     Dates: start: 20120926
  22. MORPHINE HYDROCHLORIDE [Concomitant]
     Dates: start: 20120926

REACTIONS (1)
  - General physical health deterioration [Not Recovered/Not Resolved]
